FAERS Safety Report 10236076 (Version 1)
Quarter: 2014Q2

REPORT INFORMATION
  Report Type: Spontaneous
  Country: KR (occurrence: None)
  Receive Date: 20140611
  Receipt Date: 20140611
  Transmission Date: 20141212
  Serious: Yes (Other)
  Sender: FDA-Public Use
  Company Number: 2375370

PATIENT
  Age: 14 Year
  Sex: Male

DRUGS (4)
  1. VINCRISTINE SULFATE [Suspect]
     Indication: T-CELL LYMPHOMA
  2. DEXAMETHASONE [Suspect]
     Indication: T-CELL LYMPHOMA
  3. DAUNORUBICIN [Suspect]
     Indication: T-CELL LYMPHOMA
  4. L-ASPARAGINASE [Suspect]
     Indication: T-CELL LYMPHOMA

REACTIONS (2)
  - Bronchopulmonary aspergillosis [None]
  - Acute myeloid leukaemia [None]
